FAERS Safety Report 9300718 (Version 3)
Quarter: 2013Q2

REPORT INFORMATION
  Report Type: Spontaneous
  Country: FI (occurrence: FI)
  Receive Date: 20130521
  Receipt Date: 20130621
  Transmission Date: 20140414
  Serious: Yes (Life-Threatening, Hospitalization, Other)
  Sender: FDA-Public Use
  Company Number: FI-UCBSA-085950

PATIENT
  Age: 18 Year
  Sex: Female

DRUGS (6)
  1. CIMZIA [Suspect]
     Indication: JUVENILE IDIOPATHIC ARTHRITIS
     Dosage: 200 MG EVERY SECOND WEEK
     Route: 058
     Dates: start: 20120524, end: 20121126
  2. FOLVITE [Concomitant]
     Indication: JUVENILE IDIOPATHIC ARTHRITIS
     Route: 048
     Dates: start: 20071128, end: 20121126
  3. KALCIPOS-D [Concomitant]
     Indication: PROPHYLAXIS
     Dosage: DOSE PER INTAKE: 500MG/ 400UI 1 TABLET DAILY
     Route: 048
     Dates: start: 20120823
  4. TREXAN [Concomitant]
     Indication: JUVENILE IDIOPATHIC ARTHRITIS
     Dosage: 25MG/WEEK
     Route: 048
     Dates: start: 20071128, end: 20121126
  5. OXIKLORIN [Concomitant]
     Indication: JUVENILE IDIOPATHIC ARTHRITIS
     Route: 048
     Dates: start: 20071128, end: 20130223
  6. PREDNISON [Concomitant]
     Indication: JUVENILE IDIOPATHIC ARTHRITIS
     Dosage: VARIABLE DOSE OF 5-20 MG
     Route: 048
     Dates: start: 20071128

REACTIONS (7)
  - Pulmonary tuberculosis [Not Recovered/Not Resolved]
  - Dermatitis [Unknown]
  - Tuberculosis of central nervous system [Unknown]
  - Brain abscess [Unknown]
  - Pneumothorax traumatic [Recovered/Resolved]
  - Fungal infection [Unknown]
  - Parainfluenzae virus infection [Unknown]
